FAERS Safety Report 5501713-0 (Version None)
Quarter: 2007Q4

REPORT INFORMATION
  Report Type: 
  Country: None (occurrence: None)
  Receive Date: 20071026
  Receipt Date: 20071026
  Transmission Date: 20080405
  Serious: No
  Sender: FDA-Public Use
  Company Number: None

PATIENT
  Sex: Female
  Weight: 75.7 kg

DRUGS (3)
  1. FLUOROURACIL [Suspect]
     Dosage: 4970 MG
  2. LEUCOVORIN CALCIUM [Suspect]
     Dosage: 700 MG
  3. ELOXATIN [Suspect]
     Dosage: 150 MG

REACTIONS (1)
  - NEUTROPENIA [None]
